FAERS Safety Report 26125784 (Version 1)
Quarter: 2025Q4

REPORT INFORMATION
  Report Type: Spontaneous
  Country: EU (occurrence: EU)
  Receive Date: 20251205
  Receipt Date: 20251205
  Transmission Date: 20260117
  Serious: Yes (Hospitalization, Other)
  Sender: PFIZER
  Company Number: EU-PFIZER INC-PV202500139151

PATIENT
  Age: 10 Year
  Sex: Male
  Weight: 24 kg

DRUGS (3)
  1. XALKORI [Suspect]
     Active Substance: CRIZOTINIB
     Indication: Glioma
     Dosage: 250 MG, 2X/DAY
     Route: 048
     Dates: start: 20251021
  2. LEVETIRACETAM [Concomitant]
     Active Substance: LEVETIRACETAM
     Indication: Brain neoplasm
     Dosage: 400 MG, 2X/DAY
  3. CALCIUM CARBONATE\CHOLECALCIFEROL [Concomitant]
     Active Substance: CALCIUM CARBONATE\CHOLECALCIFEROL
     Indication: Pathological fracture
     Dosage: 500 MG, 1X/DAY

REACTIONS (9)
  - Constipation [Not Recovered/Not Resolved]
  - Pericardial effusion [Not Recovered/Not Resolved]
  - Device related infection [Unknown]
  - Pneumonia [Unknown]
  - Fracture [Unknown]
  - Ileus [Unknown]
  - Pericarditis [Unknown]
  - Blood lactate dehydrogenase increased [Unknown]
  - Off label use [Unknown]

NARRATIVE: CASE EVENT DATE: 20250101
